FAERS Safety Report 8586546 (Version 2)
Quarter: 2014Q1

REPORT INFORMATION
  Report Type: Spontaneous
  Country: US (occurrence: US)
  Receive Date: 20120530
  Receipt Date: 20140114
  Transmission Date: 20141002
  Serious: Yes (Hospitalization)
  Sender: FDA-Public Use
  Company Number: US-ASTRAZENECA-2012SE33494

PATIENT
  Age: 57 Year
  Sex: Male

DRUGS (5)
  1. SYMBICORT PMDI [Suspect]
     Indication: DYSPNOEA
     Dosage: 2 PUFFS TWICE A DAY
     Route: 055
  2. SYMBICORT PMDI [Suspect]
     Indication: ASTHMA
     Dosage: 2 PUFFS TWICE A DAY
     Route: 055
  3. SYMBICORT PMDI [Suspect]
     Indication: DYSPNOEA
     Dosage: 1 PUFF UNKNOWN FREQUENCY
     Route: 055
  4. SYMBICORT PMDI [Suspect]
     Indication: ASTHMA
     Dosage: 1 PUFF UNKNOWN FREQUENCY
     Route: 055
  5. PREDNISONE [Suspect]
     Dosage: 1/2 OF PREDNISONE
     Route: 065

REACTIONS (10)
  - Dyspnoea [Unknown]
  - Feeling abnormal [Unknown]
  - Discomfort [Unknown]
  - Lower respiratory tract infection [Unknown]
  - Increased upper airway secretion [Recovered/Resolved]
  - Dyspnoea [Unknown]
  - Agitation [Unknown]
  - Anger [Unknown]
  - Intentional drug misuse [Unknown]
  - Drug dose omission [Unknown]
